FAERS Safety Report 23847009 (Version 1)
Quarter: 2024Q2

REPORT INFORMATION
  Report Type: Spontaneous
  Country: US (occurrence: US)
  Receive Date: 20240513
  Receipt Date: 20240513
  Transmission Date: 20240716
  Serious: No
  Sender: FDA-Public Use
  Company Number: US-ELI_LILLY_AND_COMPANY-US202405005560

PATIENT
  Age: 40 Year
  Sex: Male

DRUGS (10)
  1. ZEPBOUND [Suspect]
     Active Substance: TIRZEPATIDE
     Indication: Weight control
     Dosage: 15 MG, WEEKLY (1/W)
     Route: 058
  2. ZEPBOUND [Suspect]
     Active Substance: TIRZEPATIDE
     Indication: Weight control
     Dosage: 15 MG, WEEKLY (1/W)
     Route: 058
  3. ZEPBOUND [Suspect]
     Active Substance: TIRZEPATIDE
     Indication: Weight control
     Dosage: 15 MG, WEEKLY (1/W)
     Route: 058
  4. ZEPBOUND [Suspect]
     Active Substance: TIRZEPATIDE
     Indication: Weight control
     Dosage: 15 MG, WEEKLY (1/W)
     Route: 058
  5. ZEPBOUND [Suspect]
     Active Substance: TIRZEPATIDE
     Indication: Weight control
     Dosage: 15 MG, WEEKLY (1/W)
     Route: 058
  6. ZEPBOUND [Suspect]
     Active Substance: TIRZEPATIDE
     Dosage: 15 MG, WEEKLY (1/W)
     Route: 058
  7. ZEPBOUND [Suspect]
     Active Substance: TIRZEPATIDE
     Dosage: 15 MG, WEEKLY (1/W)
     Route: 058
  8. ZEPBOUND [Suspect]
     Active Substance: TIRZEPATIDE
     Dosage: 15 MG, WEEKLY (1/W)
     Route: 058
  9. ZEPBOUND [Suspect]
     Active Substance: TIRZEPATIDE
     Dosage: 15 MG, WEEKLY (1/W)
     Route: 058
  10. ZEPBOUND [Suspect]
     Active Substance: TIRZEPATIDE
     Dosage: 15 MG, WEEKLY (1/W)
     Route: 058

REACTIONS (2)
  - Incorrect dose administered [Unknown]
  - Injection site pain [Recovered/Resolved]
